FAERS Safety Report 21609025 (Version 2)
Quarter: 2022Q4

REPORT INFORMATION
  Report Type: Spontaneous
  Country: TR (occurrence: TR)
  Receive Date: 20221117
  Receipt Date: 20221209
  Transmission Date: 20230113
  Serious: Yes (Hospitalization)
  Sender: FDA-Public Use
  Company Number: TR-TEVA-2022-TR-2826237

PATIENT
  Age: 69 Year
  Sex: Female

DRUGS (5)
  1. AMLODIPINE [Suspect]
     Active Substance: AMLODIPINE BESYLATE
     Indication: Hypertension
     Route: 065
  2. INSULIN GLARGINE [Suspect]
     Active Substance: INSULIN GLARGINE
     Indication: Type 2 diabetes mellitus
     Dosage: LONG-ACTING INSULIN GLARGINE 10 UNITS OF ONCE A DAY
     Route: 065
  3. INSULIN NOS [Suspect]
     Active Substance: INSULIN NOS
     Indication: Type 2 diabetes mellitus
     Dosage: SHORT-ACTING REGULAR INSULIN 18-20 UNITS TWICE A DAY
     Route: 065
  4. HYDROCHLOROTHIAZIDE\LOSARTAN [Suspect]
     Active Substance: HYDROCHLOROTHIAZIDE\LOSARTAN
     Indication: Hypertension
     Route: 065
  5. DEXTROSE [Concomitant]
     Active Substance: DEXTROSE
     Indication: Product used for unknown indication
     Route: 065

REACTIONS (4)
  - Chorea [Recovered/Resolved]
  - Ballismus [Recovered/Resolved]
  - Ischaemia [Unknown]
  - Hyperintensity in brain deep nuclei [Unknown]
